FAERS Safety Report 23540444 (Version 1)
Quarter: 2024Q1

REPORT INFORMATION
  Report Type: Spontaneous
  Country: US (occurrence: US)
  Receive Date: 20240219
  Receipt Date: 20240219
  Transmission Date: 20240409
  Serious: No
  Sender: FDA-Public Use
  Company Number: US-Stemline Therapeutics, Inc.-2023ST004231

PATIENT
  Age: 83 Year
  Sex: Female

DRUGS (1)
  1. ORSERDU [Suspect]
     Active Substance: ELACESTRANT
     Indication: Product used for unknown indication
     Dosage: 345 MG ONCE A DAY
     Route: 048
     Dates: start: 20230812

REACTIONS (6)
  - Tumour marker decreased [Unknown]
  - Regurgitation [Unknown]
  - Bone scan abnormal [Unknown]
  - Positron emission tomogram abnormal [Unknown]
  - Product dose omission issue [Unknown]
  - Musculoskeletal chest pain [Recovered/Resolved]
